FAERS Safety Report 4957574-1 (Version None)
Quarter: 2006Q1

REPORT INFORMATION
  Report Type: 
  Country: None (occurrence: None)
  Receive Date: 20060330
  Receipt Date: 20060323
  Transmission Date: 20060701
  Serious: Yes (Hospitalization)
  Sender: FDA-Public Use
  Company Number: 2006AP01454

PATIENT
  Age: 28576 Day
  Sex: Male
  Weight: 57 kg

DRUGS (2)
  1. IRESSA [Suspect]
     Indication: NON-SMALL CELL LUNG CANCER
     Route: 048
     Dates: start: 20060120, end: 20060301
  2. IRESSA [Suspect]
     Indication: LUNG ADENOCARCINOMA
     Route: 048
     Dates: start: 20060120, end: 20060301

REACTIONS (2)
  - ACUTE PRERENAL FAILURE [None]
  - PNEUMONIA [None]
